FAERS Safety Report 8999286 (Version 1)
Quarter: 2013Q1

REPORT INFORMATION
  Report Type: Spontaneous
  Country: US (occurrence: US)
  Receive Date: 20130103
  Receipt Date: 20130103
  Transmission Date: 20140127
  Serious: Yes (Hospitalization)
  Sender: FDA-Public Use
  Company Number: US-009507513-1301USA000178

PATIENT
  Sex: Female

DRUGS (1)
  1. LISINOPRIL [Suspect]

REACTIONS (1)
  - Hypersensitivity [Unknown]
